FAERS Safety Report 9841789 (Version 1)
Quarter: 2013Q4

REPORT INFORMATION
  Report Type: Spontaneous
  Country: US (occurrence: None)
  Receive Date: 20131219
  Receipt Date: 20131219
  Transmission Date: 20140711
  Serious: Yes (Other)
  Sender: FDA-Public Use
  Company Number: 163-20785-12111866

PATIENT
  Age: 58 Year
  Sex: Female
  Weight: 88.91 kg

DRUGS (8)
  1. THALOMID (THALIDOMIDE) (CAPSULES) [Suspect]
     Indication: PLASMA CELL MYELOMA
     Dosage: 1 IN 1 D
     Route: 048
     Dates: start: 20120104, end: 201206
  2. AMLODIPINE [Concomitant]
  3. OMEPRAZOLE [Concomitant]
  4. ALBUTEROL [Concomitant]
  5. HYDROCODONE [Concomitant]
  6. TEMAZEPAM [Concomitant]
  7. VITAMIN C [Concomitant]
  8. VITAMIN D [Concomitant]

REACTIONS (1)
  - Platelet count decreased [None]
